FAERS Safety Report 19157154 (Version 1)
Quarter: 2021Q2

REPORT INFORMATION
  Report Type: Spontaneous
  Country: US (occurrence: US)
  Receive Date: 20210419
  Receipt Date: 20210419
  Transmission Date: 20210717
  Serious: Yes (Death)
  Sender: FDA-Public Use
  Company Number: None

PATIENT
  Sex: Male

DRUGS (16)
  1. ATORVASTATIN [Concomitant]
     Active Substance: ATORVASTATIN
  2. BETAMETH VAL [Concomitant]
  3. FUROSEMIDE. [Concomitant]
     Active Substance: FUROSEMIDE
  4. METOCLOPRAM [Concomitant]
     Active Substance: METOCLOPRAMIDE
  5. METOLAZONE. [Concomitant]
     Active Substance: METOLAZONE
  6. CLOTRIM/BETA [Concomitant]
  7. POT CHLORIDE ER [Concomitant]
  8. KETOCONAZOLE. [Concomitant]
     Active Substance: KETOCONAZOLE
  9. PEG?3350/KCL/SODIUM [Concomitant]
  10. RANOLAZINE. [Concomitant]
     Active Substance: RANOLAZINE
  11. POT CL MICRO ER [Concomitant]
  12. SALINE NASAL SPR [Concomitant]
  13. XARELTO [Concomitant]
     Active Substance: RIVAROXABAN
  14. DOK [Concomitant]
     Active Substance: DOCUSATE SODIUM
  15. TRIACINOLON CRE [Concomitant]
  16. VYNDAMAX [Suspect]
     Active Substance: TAFAMIDIS
     Indication: FUNGAL INFECTION
     Route: 048
     Dates: start: 20200820

REACTIONS (1)
  - Death [None]

NARRATIVE: CASE EVENT DATE: 20210416
